FAERS Safety Report 15711524 (Version 4)
Quarter: 2019Q2

REPORT INFORMATION
  Report Type: Report from Study
  Country: BR (occurrence: BR)
  Receive Date: 20181211
  Receipt Date: 20190410
  Transmission Date: 20190711
  Serious: Yes (Other)
  Sender: FDA-Public Use
  Company Number: BR-ROCHE-2226935

PATIENT
  Age: 17 Year
  Sex: Female
  Weight: 47 kg

DRUGS (10)
  1. ALENIA (BRAZIL) [Concomitant]
     Active Substance: BUDESONIDE\FORMOTEROL FUMARATE
     Indication: RHINITIS
     Dosage: UNK, BID (12/12 INHALE)
     Route: 055
  2. BUSONID [Concomitant]
     Active Substance: BUDESONIDE
     Indication: ASTHMA
     Dosage: UNK, BID
     Route: 045
     Dates: start: 2016
  3. BUSONID [Concomitant]
     Active Substance: BUDESONIDE
     Indication: RHINITIS
     Route: 065
  4. XOLAIR [Suspect]
     Active Substance: OMALIZUMAB
     Dosage: UNK
     Route: 058
     Dates: start: 201812
  5. AEROLIN [Concomitant]
     Active Substance: ALBUTEROL
     Indication: ASTHMA
     Dosage: UNK
     Route: 065
     Dates: start: 2016
  6. LORATADINE. [Concomitant]
     Active Substance: LORATADINE
     Indication: ASTHMA
     Dosage: 1 DF, QD
     Route: 048
     Dates: start: 2016
  7. LORATADINE. [Concomitant]
     Active Substance: LORATADINE
     Indication: RHINITIS
     Route: 065
  8. XOLAIR [Suspect]
     Active Substance: OMALIZUMAB
     Indication: ASTHMA
     Dosage: 450 MG (3 AMPOULES OF 150 MG)
     Route: 058
     Dates: start: 20181108
  9. ALENIA (BRAZIL) [Concomitant]
     Active Substance: BUDESONIDE\FORMOTEROL FUMARATE
     Indication: ASTHMA
     Dosage: UNK, BID
     Route: 048
     Dates: start: 2016
  10. XOLAIR [Suspect]
     Active Substance: OMALIZUMAB
     Dosage: 450 MG, EVERY 14 DAYS
     Route: 058
     Dates: start: 20181123, end: 20181123

REACTIONS (28)
  - Joint swelling [Unknown]
  - Eye swelling [Recovering/Resolving]
  - Arthralgia [Recovering/Resolving]
  - Throat irritation [Recovering/Resolving]
  - Pharyngeal erythema [Recovered/Resolved]
  - Lip oedema [Recovering/Resolving]
  - Paraesthesia [Recovering/Resolving]
  - Eye pruritus [Recovering/Resolving]
  - Crying [Unknown]
  - Asthma [Recovering/Resolving]
  - Weight decreased [Not Recovered/Not Resolved]
  - Abdominal pain [Recovering/Resolving]
  - Eye pain [Unknown]
  - Musculoskeletal pain [Unknown]
  - Asthmatic crisis [Unknown]
  - Abdominal pain upper [Not Recovered/Not Resolved]
  - Pain [Unknown]
  - Hypersensitivity [Unknown]
  - Gait disturbance [Unknown]
  - Pyrexia [Unknown]
  - Angioedema [Recovering/Resolving]
  - Hypoaesthesia [Recovering/Resolving]
  - Eyelid oedema [Recovered/Resolved]
  - Hyperaemia [Unknown]
  - Eye oedema [Recovering/Resolving]
  - Myalgia [Unknown]
  - Abdominal pain lower [Recovered/Resolved]
  - Pruritus [Recovering/Resolving]

NARRATIVE: CASE EVENT DATE: 20181109
